FAERS Safety Report 7991616-4 (Version None)
Quarter: 2011Q4

REPORT INFORMATION
  Report Type: 
  Country: None (occurrence: None)
  Receive Date: 20111219
  Receipt Date: 20111115
  Transmission Date: 20120403
  Serious: No
  Sender: FDA-Public Use
  Company Number: US-ALLERGAN-1115013US

PATIENT
  Age: 70 Year
  Sex: Female

DRUGS (4)
  1. LOTREL [Concomitant]
     Indication: BLOOD PRESSURE
  2. LIPITOR [Concomitant]
     Indication: BLOOD CHOLESTEROL INCREASED
  3. LUMIGAN [Suspect]
     Indication: PRODUCT USED FOR UNKNOWN INDICATION
     Dosage: 2 GTT, QD
     Route: 047
     Dates: start: 20101101
  4. LUMIGAN [Suspect]
     Dosage: UNK
     Route: 047

REACTIONS (1)
  - CHROMATURIA [None]
